FAERS Safety Report 11054509 (Version 2)
Quarter: 2015Q2

REPORT INFORMATION
  Report Type: Spontaneous
  Country: US (occurrence: US)
  Receive Date: 20150422
  Receipt Date: 20150611
  Transmission Date: 20150821
  Serious: Yes (Hospitalization, Other)
  Sender: FDA-Public Use
  Company Number: US-JNJFOC-20150410577

PATIENT
  Age: 82 Year
  Sex: Male

DRUGS (12)
  1. BRIMONIDINE [Concomitant]
     Active Substance: BRIMONIDINE\BRIMONIDINE TARTRATE
     Route: 047
  2. NIACIN. [Concomitant]
     Active Substance: NIACIN
     Route: 065
  3. MELOXICAM. [Concomitant]
     Active Substance: MELOXICAM
     Indication: OSTEOARTHRITIS
     Route: 065
  4. ASPIRIN. [Concomitant]
     Active Substance: ASPIRIN
     Route: 065
  5. TIMOLOL [Concomitant]
     Active Substance: TIMOLOL
     Route: 047
  6. TRAVATAN [Concomitant]
     Active Substance: TRAVOPROST
     Dosage: IN BOTH EYES DAILY
     Route: 047
  7. VITAMIN D [Concomitant]
     Active Substance: CHOLECALCIFEROL
     Route: 065
  8. MEGACE [Concomitant]
     Active Substance: MEGESTROL ACETATE
     Route: 065
  9. ZYTIGA [Suspect]
     Active Substance: ABIRATERONE ACETATE
     Indication: PROSTATE CANCER
     Route: 048
     Dates: start: 20150211, end: 20150317
  10. CALCIUM WITH VITAMIN D [Concomitant]
     Active Substance: CALCIUM\VITAMIN D
     Route: 065
  11. CITALOPRAM [Concomitant]
     Active Substance: CITALOPRAM HYDROBROMIDE
     Route: 065
  12. ZYTIGA [Suspect]
     Active Substance: ABIRATERONE ACETATE
     Indication: PROSTATE CANCER
     Route: 048
     Dates: start: 20150508

REACTIONS (14)
  - Atrial fibrillation [Unknown]
  - Dehydration [Unknown]
  - Lower respiratory tract infection [Unknown]
  - Acute kidney injury [Not Recovered/Not Resolved]
  - Urosepsis [Unknown]
  - Aspartate aminotransferase increased [Unknown]
  - Asthenia [Unknown]
  - Alanine aminotransferase increased [Recovered/Resolved]
  - Thrombocytopenia [Unknown]
  - Urinary tract infection [Unknown]
  - Orthostatic hypotension [Not Recovered/Not Resolved]
  - Muscular weakness [Unknown]
  - Fall [Unknown]
  - Blood potassium decreased [Unknown]

NARRATIVE: CASE EVENT DATE: 20150317
